FAERS Safety Report 5246851-5 (Version None)
Quarter: 2007Q1

REPORT INFORMATION
  Report Type: 
  Country: None (occurrence: None)
  Receive Date: 20070226
  Receipt Date: 20070216
  Transmission Date: 20070707
  Serious: Yes (Other)
  Sender: FDA-Public Use
  Company Number: GB-PFIZER INC-2007013465

PATIENT
  Sex: Male

DRUGS (1)
  1. SOLU-MEDRONE [Suspect]

REACTIONS (3)
  - BLOOD CALCIUM DECREASED [None]
  - LYMPHOMA [None]
  - MUSCLE SPASMS [None]
